FAERS Safety Report 21489398 (Version 1)
Quarter: 2022Q4

REPORT INFORMATION
  Report Type: Other
  Country: US (occurrence: US)
  Receive Date: 20221021
  Receipt Date: 20221021
  Transmission Date: 20230113
  Serious: No
  Sender: FDA-Public Use
  Company Number: US-DECIPHERA PHARMACEUTICALS LLC-2022US000822

PATIENT
  Sex: Female

DRUGS (1)
  1. QINLOCK [Suspect]
     Active Substance: RIPRETINIB
     Indication: Gastrointestinal stromal tumour
     Dosage: 150 MILLIGRAM, QD
     Route: 048
     Dates: start: 20220921

REACTIONS (7)
  - Pain [Unknown]
  - Feeling hot [Unknown]
  - Drug intolerance [Unknown]
  - Fatigue [Unknown]
  - Asthenia [Unknown]
  - Insomnia [Unknown]
  - Intentional dose omission [Unknown]
